FAERS Safety Report 24047968 (Version 4)
Quarter: 2025Q4

REPORT INFORMATION
  Report Type: Report from Study
  Country: US (occurrence: US)
  Receive Date: 20240703
  Receipt Date: 20251022
  Transmission Date: 20260117
  Serious: No
  Sender: MERCK SHARP & DOHME LLC
  Company Number: None

PATIENT
  Sex: Female
  Weight: 81.6 kg

DRUGS (32)
  1. SOTATERCEPT [Suspect]
     Active Substance: SOTATERCEPT
     Indication: Product used for unknown indication
     Dosage: DOSE DESCRIPTION : UNK
     Dates: start: 2024
  2. SOTATERCEPT [Suspect]
     Active Substance: SOTATERCEPT
  3. SOTATERCEPT [Suspect]
     Active Substance: SOTATERCEPT
  4. SOTATERCEPT [Suspect]
     Active Substance: SOTATERCEPT
  5. WINREVAIR [Suspect]
     Active Substance: SOTATERCEPT-CSRK
     Indication: Pulmonary arterial hypertension
     Route: 058
     Dates: start: 202405
  6. WINREVAIR [Suspect]
     Active Substance: SOTATERCEPT-CSRK
  7. WINREVAIR [Suspect]
     Active Substance: SOTATERCEPT-CSRK
  8. WINREVAIR [Suspect]
     Active Substance: SOTATERCEPT-CSRK
  9. REMODULIN [Suspect]
     Active Substance: TREPROSTINIL
     Indication: Pulmonary arterial hypertension
     Dosage: DOSE DESCRIPTION : CONCENTRATION 5 MG/ML; 0.035 UG/KG CONTINUOUS VIA INTRAVENOUS (IV) ROUTE?CONCE...
     Route: 042
     Dates: start: 202308
  10. REMODULIN [Suspect]
     Active Substance: TREPROSTINIL
     Indication: Pulmonary arterial hypertension
     Dosage: DOSE DESCRIPTION : CONCENTRATION 5 MG/ML; 0.0364 UG/KG CONTINUOUS VIA IV ROUTE
     Route: 042
  11. REMODULIN [Suspect]
     Active Substance: TREPROSTINIL
     Indication: Pulmonary arterial hypertension
     Dosage: DOSE DESCRIPTION : CONCENTRATION 5 MG/ML; 0.0381 UG/KG CONTINUOUS VIA IV ROUTE
     Route: 042
     Dates: start: 20240308
  12. OPSUMIT [Concomitant]
     Active Substance: MACITENTAN
     Dosage: DOSE DESCRIPTION : UNK
  13. VITAMIN B12 [Concomitant]
     Active Substance: CYANOCOBALAMIN
     Dosage: DOSE DESCRIPTION : UNK
  14. FUROSEMIDE [Concomitant]
     Active Substance: FUROSEMIDE
     Dosage: DOSE DESCRIPTION : UNK
  15. XARELTO [Concomitant]
     Active Substance: RIVAROXABAN
     Dosage: DOSE DESCRIPTION : UNK
  16. SODIUM CHLORIDE [Concomitant]
     Active Substance: SODIUM CHLORIDE
     Dosage: DOSE DESCRIPTION : UNK
  17. MAGNESIUM OXIDE [Concomitant]
     Active Substance: MAGNESIUM OXIDE
     Dosage: DOSE DESCRIPTION : UNK
  18. VITAMIN D3 [Concomitant]
     Active Substance: CHOLECALCIFEROL
     Dosage: DOSE DESCRIPTION : UNK
  19. TADALAFIL [Concomitant]
     Active Substance: TADALAFIL
     Dosage: DOSE DESCRIPTION : UNK
  20. ALBUTEROL SULFATE [Concomitant]
     Active Substance: ALBUTEROL SULFATE
     Dosage: DOSE DESCRIPTION : UNK
  21. FLUTICASONE PROPIONATE [Concomitant]
     Active Substance: FLUTICASONE PROPIONATE
     Dosage: DOSE DESCRIPTION : UNK
  22. ARIPIPRAZOLE [Concomitant]
     Active Substance: ARIPIPRAZOLE
     Dosage: DOSE DESCRIPTION : UNK
  23. OXYGEN [Concomitant]
     Active Substance: OXYGEN
     Dosage: DOSE DESCRIPTION : UNK
  24. MONTELUKAST SODIUM [Concomitant]
     Active Substance: MONTELUKAST SODIUM
     Dosage: DOSE DESCRIPTION : UNK
  25. SPIRONOLACTONE [Concomitant]
     Active Substance: SPIRONOLACTONE
     Dosage: DOSE DESCRIPTION : UNK
  26. DIGOXIN [Concomitant]
     Active Substance: DIGOXIN
     Dosage: DOSE DESCRIPTION : UNK
  27. PAROXETINE HYDROCHLORIDE [Concomitant]
     Active Substance: PAROXETINE HYDROCHLORIDE
     Dosage: DOSE DESCRIPTION : UNK
  28. LAMOTRIGINE [Concomitant]
     Active Substance: LAMOTRIGINE
     Dosage: DOSE DESCRIPTION : UNK
  29. HERBALS\PLANTAGO OVATA LEAF [Concomitant]
     Active Substance: HERBALS\PLANTAGO OVATA LEAF
     Dosage: DOSE DESCRIPTION : UNK
  30. METHOCARBAMOL [Concomitant]
     Active Substance: METHOCARBAMOL
  31. LURASIDONE [Concomitant]
     Active Substance: LURASIDONE
  32. POTASSIUM CHLORIDE [Concomitant]
     Active Substance: POTASSIUM CHLORIDE

REACTIONS (8)
  - Fatigue [Recovered/Resolved]
  - Liquid product physical issue [Unknown]
  - Inappropriate schedule of product administration [Unknown]
  - Skin haemorrhage [Unknown]
  - Injection site discharge [Unknown]
  - Injection site pain [Unknown]
  - Headache [Recovered/Resolved]
  - Nausea [Unknown]

NARRATIVE: CASE EVENT DATE: 20240101
